FAERS Safety Report 8187543-2 (Version None)
Quarter: 2012Q1

REPORT INFORMATION
  Report Type: 
  Country: None (occurrence: None)
  Receive Date: 20120221
  Receipt Date: 20111104
  Transmission Date: 20120608
  Serious: Yes (Other)
  Sender: FDA-Public Use
  Company Number: PHEH2011US009061

PATIENT
  Age: 21 Year
  Sex: Female

DRUGS (1)
  1. TOBI [Suspect]
     Indication: CHRONIC MYELOID LEUKAEMIA
     Dosage: 300 MG, BID, INHALATION
     Route: 055
     Dates: start: 20080319, end: 20110601

REACTIONS (1)
  - HEARING IMPAIRED [None]
